FAERS Safety Report 8699985 (Version 2)
Quarter: 2012Q4

REPORT INFORMATION
  Report Type: Report from Study
  Country: JP (occurrence: JP)
  Receive Date: 20120802
  Receipt Date: 20121115
  Transmission Date: 20130627
  Serious: Yes (Hospitalization)
  Sender: FDA-Public Use
  Company Number: JP-GILEAD-2011-0037861

PATIENT
  Age: 43 Year
  Sex: Male

DRUGS (14)
  1. TRUVADA [Suspect]
     Indication: HIV INFECTION
     Dosage: 1 DF, QD
     Route: 048
     Dates: start: 20100108, end: 20100121
  2. TRUVADA [Suspect]
     Dosage: 1 DF, QD
     Route: 048
     Dates: start: 20100208, end: 20120630
  3. TRUVADA [Suspect]
     Dosage: 1 DF, QD
     Route: 048
     Dates: start: 20100816
  4. NORVIR [Suspect]
     Indication: HIV INFECTION
     Dosage: 100 mg, QD
     Route: 048
     Dates: start: 20100108, end: 20100121
  5. PREZISTANAIVE [Suspect]
     Indication: HIV INFECTION
     Dosage: 800 mg, QD
     Route: 048
     Dates: start: 20100108, end: 20100121
  6. CELESTAMINE [Suspect]
     Indication: RASH
     Dosage: 1 DF, TID
     Route: 048
     Dates: start: 20100118, end: 20100126
  7. CELESTAMINE [Suspect]
     Dosage: 1 DF, TID
     Route: 048
     Dates: start: 20100127, end: 20100131
  8. METHYLPREDNISOLONE SODIUM SUCCINATE [Suspect]
     Indication: RASH
     Dosage: 500 mg, Once
     Dates: start: 20100121, end: 20100121
  9. EPIVIR [Concomitant]
     Indication: HIV INFECTION
     Dosage: 300 mg, QD
     Route: 048
     Dates: start: 20100128, end: 20100207
  10. EPIVIR [Concomitant]
     Dosage: 300 mg, QD
     Route: 048
     Dates: start: 20100701, end: 20100815
  11. ZERIT [Concomitant]
     Indication: HIV INFECTION
     Route: 048
     Dates: start: 20100128, end: 20100207
  12. STOCRIN [Concomitant]
     Indication: HIV INFECTION
     Route: 048
     Dates: start: 20100128, end: 20100207
  13. LOPEMIN [Concomitant]
     Dates: start: 20100108, end: 20100127
  14. ISENTRESS [Concomitant]
     Dosage: UNK
     Dates: start: 20100208

REACTIONS (4)
  - Salmonella sepsis [Recovering/Resolving]
  - Platelet count decreased [Recovered/Resolved]
  - Hepatic function abnormal [Recovered/Resolved]
  - Rash [Not Recovered/Not Resolved]
